FAERS Safety Report 4490773-4 (Version None)
Quarter: 2004Q4

REPORT INFORMATION
  Report Type: 
  Country: None (occurrence: None)
  Receive Date: 20041022
  Receipt Date: 20041006
  Transmission Date: 20050328
  Serious: Yes (Life-Threatening, Hospitalization, Disabling)
  Sender: FDA-Public Use
  Company Number: WAES 0408BRA00035

PATIENT
  Age: 73 Year
  Sex: Female
  Weight: 51.7101 kg

DRUGS (10)
  1. VIOXX [Suspect]
     Indication: NEOPLASM PROPHYLAXIS
     Dosage: 25 MG/DAILY/PO
     Route: 048
     Dates: start: 20011009, end: 20040511
  2. ACETAMINOPHEN [Suspect]
     Indication: PROPHYLAXIS
     Dosage: 325 MG/PRN/PO
     Route: 048
     Dates: start: 20010830
  3. ACETAMINOPHEN [Concomitant]
  4. ALENDRONATE SODIUM [Concomitant]
  5. CALCIUM CARBONATE [Concomitant]
  6. CHLORTHALIDONE [Concomitant]
  7. ENALAPRIL MALEATE [Concomitant]
  8. MAGNESIA (MILK OF) [Concomitant]
  9. NORTRIPTYLINE HCL [Concomitant]
  10. MULTIVITAMIN [Concomitant]

REACTIONS (10)
  - ACUTE PULMONARY OEDEMA [None]
  - AORTIC VALVE INCOMPETENCE [None]
  - BRONCHOPNEUMONIA [None]
  - CARDIAC FAILURE CONGESTIVE [None]
  - CHEST PAIN [None]
  - CORONARY ARTERY DISEASE [None]
  - DYSPNOEA [None]
  - MITRAL VALVE CALCIFICATION [None]
  - PULMONARY HYPERTENSION [None]
  - TRICUSPID VALVE INCOMPETENCE [None]
